FAERS Safety Report 23971838 (Version 1)
Quarter: 2024Q2

REPORT INFORMATION
  Report Type: Spontaneous
  Country: CA (occurrence: CA)
  Receive Date: 20240613
  Receipt Date: 20240613
  Transmission Date: 20240716
  Serious: Yes (Other)
  Sender: FDA-Public Use
  Company Number: CA-PFIZER INC-202400190913

PATIENT
  Age: 74 Year
  Sex: Male

DRUGS (3)
  1. ABRILADA [Suspect]
     Active Substance: ADALIMUMAB-AFZB
     Indication: Rheumatoid arthritis
     Dosage: 40 MG, EVERY 2 WEEK
     Route: 058
     Dates: start: 20220921
  2. METHOTREXATE [Concomitant]
     Active Substance: METHOTREXATE
     Dosage: 1 DF, UNKNWON SATURDAY AND SUNDAY
  3. PREDNISONE [Concomitant]
     Active Substance: PREDNISONE
     Dosage: 1 DF,  DOSAGE UNKNOWN 3 TO 4 TIMES WEEKLY
     Route: 065

REACTIONS (2)
  - Fractured coccyx [Unknown]
  - Fall [Unknown]
